FAERS Safety Report 9681531 (Version 4)
Quarter: 2014Q3

REPORT INFORMATION
  Report Type: Spontaneous
  Country: US (occurrence: US)
  Receive Date: 20131111
  Receipt Date: 20140825
  Transmission Date: 20150326
  Serious: Yes (Hospitalization, Other)
  Sender: FDA-Public Use
  Company Number: US-GLAXOSMITHKLINE-A1048236A

PATIENT
  Age: 46 Year
  Sex: Female
  Weight: 61.8 kg

DRUGS (7)
  1. BENLYSTA [Suspect]
     Active Substance: BELIMUMAB
     Indication: SYSTEMIC LUPUS ERYTHEMATOSUS
     Route: 042
     Dates: start: 20130624, end: 20131003
  2. LEVOTHROID [Concomitant]
     Active Substance: LEVOTHYROXINE SODIUM
     Dosage: 100MCG PER DAY
  3. TRAMADOL [Concomitant]
     Active Substance: TRAMADOL
  4. IV ANTIBIOTICS [Suspect]
     Active Substance: UNSPECIFIED INGREDIENT
     Indication: WOUND INFECTION
     Route: 042
  5. LEXAPRO [Concomitant]
     Active Substance: ESCITALOPRAM OXALATE
     Indication: DEPRESSION
     Dosage: 10MG PER DAY
  6. DILAUDID [Concomitant]
     Active Substance: HYDROMORPHONE HYDROCHLORIDE
  7. PLAQUENIL [Concomitant]
     Active Substance: HYDROXYCHLOROQUINE SULFATE
     Indication: SYSTEMIC LUPUS ERYTHEMATOSUS
     Dosage: 200MG TWICE PER DAY

REACTIONS (18)
  - Ill-defined disorder [Recovered/Resolved]
  - Cellulitis [Recovered/Resolved]
  - Arthropod bite [Recovering/Resolving]
  - Pyrexia [Recovered/Resolved]
  - Pain [Recovering/Resolving]
  - Blister [Recovering/Resolving]
  - Drug ineffective [Unknown]
  - Sepsis [Recovered/Resolved]
  - Impaired healing [Recovered/Resolved]
  - Inflammation [Recovering/Resolving]
  - Staphylococcal infection [Recovered/Resolved]
  - Ulcer [Recovering/Resolving]
  - Erythema [Recovering/Resolving]
  - Infection [Unknown]
  - Immunosuppression [Recovered/Resolved]
  - Purulent discharge [Recovered/Resolved]
  - Drug hypersensitivity [Unknown]
  - Investigation [Unknown]

NARRATIVE: CASE EVENT DATE: 20130803
